FAERS Safety Report 9787667 (Version 1)
Quarter: 2013Q4

REPORT INFORMATION
  Report Type: Spontaneous
  Country: US (occurrence: US)
  Receive Date: 20131230
  Receipt Date: 20131230
  Transmission Date: 20140711
  Serious: Yes (Other)
  Sender: FDA-Public Use
  Company Number: US-BAYER-2013-157135

PATIENT
  Age: 46 Year
  Sex: Female

DRUGS (8)
  1. ACETYLSALICYLIC ACID (} 100 MG) [Suspect]
  2. ZILEUTON [Concomitant]
     Indication: ASTHMA
  3. BUDESONIDE W/FORMOTEROL FUMARATE [Concomitant]
     Indication: ASTHMA
  4. ALBUTEROL [Concomitant]
     Indication: ASTHMA
  5. PREDNISONE [Concomitant]
     Indication: ASTHMA
     Dosage: 40 MG/DAY
  6. DIPHENHYDRAMINE [Concomitant]
     Indication: NASAL DISORDER
  7. BUDESONIDE [Concomitant]
     Indication: NASAL DISORDER
     Route: 045
  8. AZELASTINE [Concomitant]
     Indication: NASAL DISORDER
     Route: 045

REACTIONS (2)
  - Cardiac arrest [None]
  - Analgesic asthma syndrome [None]
